FAERS Safety Report 15057896 (Version 3)
Quarter: 2020Q4

REPORT INFORMATION
  Report Type: Spontaneous
  Country: FR (occurrence: FR)
  Receive Date: 20180625
  Receipt Date: 20201001
  Transmission Date: 20210113
  Serious: Yes (Death, Life-Threatening, Other)
  Sender: FDA-Public Use
  Company Number: FR-ADIENNEP-2018AD000335

PATIENT
  Age: 26 Year
  Sex: Female
  Weight: 97 kg

DRUGS (19)
  1. CICLOSPORIN [Suspect]
     Active Substance: CYCLOSPORINE
     Indication: PROPHYLAXIS AGAINST GRAFT VERSUS HOST DISEASE
     Dosage: 3 MG/KG DAILY
     Route: 042
     Dates: start: 20180605, end: 20180614
  2. DELURSAN 250 MG [Suspect]
     Active Substance: URSODIOL
     Indication: PROPHYLAXIS AGAINST GRAFT VERSUS HOST DISEASE
     Dosage: 3 DF DAILY
     Route: 048
     Dates: start: 201805, end: 201806
  3. SODIUM CHLORIDE. [Suspect]
     Active Substance: SODIUM CHLORIDE
     Indication: MEDICATION DILUTION
     Dosage: 100 ML DAILY
     Route: 041
     Dates: start: 20180526, end: 20180529
  4. SODIUM CHLORIDE. [Suspect]
     Active Substance: SODIUM CHLORIDE
     Indication: MEDICATION DILUTION
     Dosage: 500 ML DAILY
     Route: 041
     Dates: start: 20180603, end: 20180604
  5. CELLCEPT [Suspect]
     Active Substance: MYCOPHENOLATE MOFETIL\MYCOPHENOLATE MOFETIL HYDROCHLORIDE
     Indication: PROPHYLAXIS AGAINST GRAFT VERSUS HOST DISEASE
     Dosage: 45 MG/KG DAILY
     Route: 042
     Dates: start: 20180605, end: 201807
  6. TRIFLUCAN 2 MG/ML [Suspect]
     Active Substance: FLUCONAZOLE
     Indication: PYREXIA
     Dosage: 200 MG EVERY 24 HOUR(S)
     Route: 042
     Dates: start: 201806, end: 201806
  7. UROMITEXAN [Suspect]
     Active Substance: MESNA
     Dosage: 792 MG
     Route: 041
     Dates: start: 20180603, end: 20180605
  8. FLUDARABINE PHOSPHATE. [Suspect]
     Active Substance: FLUDARABINE PHOSPHATE
     Indication: STEM CELL TRANSPLANT
     Dosage: 40 MG/M2 DAILY
     Route: 041
     Dates: start: 20180526, end: 20180529
  9. BUSILVEX 6 MG/ML [Suspect]
     Active Substance: BUSULFAN
     Indication: STEM CELL TRANSPLANT
     Dosage: 3.2 MG/KG DAILY, 281.5 MG DAILY CUMULATIVE
     Route: 041
     Dates: start: 20180526, end: 20180528
  10. GRANULOCYTE COLONY STIMULATING FACTOR [Suspect]
     Active Substance: GRANULOCYTE COLONY-STIMULATING FACTOR NOS
     Indication: PROPHYLAXIS
  11. SODIUM CHLORIDE. [Suspect]
     Active Substance: SODIUM CHLORIDE
     Indication: MEDICATION DILUTION
     Dosage: 563 ML DAILY
     Route: 041
     Dates: start: 20180526, end: 20180528
  12. ENDOXAN [Suspect]
     Active Substance: CYCLOPHOSPHAMIDE
     Indication: PROPHYLAXIS AGAINST GRAFT VERSUS HOST DISEASE
     Dosage: 50 MG/KG DAILY
     Route: 041
     Dates: start: 20180603, end: 20180604
  13. AMIKACIN. [Suspect]
     Active Substance: AMIKACIN
     Indication: PYREXIA
     Dosage: 1.5 G EVERY 24 HOUR(S)
     Route: 042
     Dates: start: 20180601, end: 20180603
  14. VANCOMYCIN [Suspect]
     Active Substance: VANCOMYCIN
     Indication: PYREXIA
     Dosage: 2.5 G EVERY 24 HOUR(S)
     Route: 042
     Dates: start: 201806, end: 201806
  15. THIOTEPA. [Suspect]
     Active Substance: THIOTEPA
     Indication: STEM CELL TRANSPLANT
     Dosage: 5 MG/KG DAILY
     Route: 041
     Dates: start: 20180524, end: 20180525
  16. FORTUM [Suspect]
     Active Substance: CEFTAZIDIME
     Indication: PYREXIA
     Dosage: 6 G EVERY 24 HOUR(S)
     Route: 042
     Dates: start: 201806, end: 201806
  17. ROCEPHINE 2 G [Suspect]
     Active Substance: CEFTRIAXONE SODIUM
     Indication: PYREXIA
     Dosage: 1 DF EVERY 24 HOUR(S)
     Route: 042
     Dates: start: 20180601, end: 20180603
  18. SODIUM CHLORIDE. [Suspect]
     Active Substance: SODIUM CHLORIDE
     Indication: MEDICATION DILUTION
     Dosage: 500 ML DAILY
     Route: 041
     Dates: start: 20180524, end: 20180525
  19. ACICLOVIR [Suspect]
     Active Substance: ACYCLOVIR
     Indication: PYREXIA
     Dosage: 750 MG TOTAL
     Route: 042
     Dates: start: 201806, end: 201806

REACTIONS (21)
  - Dyspnoea [Unknown]
  - Acute kidney injury [Unknown]
  - Atelectasis [Fatal]
  - Sepsis [Unknown]
  - Pelvic fluid collection [Unknown]
  - Cardiogenic shock [Unknown]
  - Disease recurrence [Unknown]
  - Peritonitis [Unknown]
  - Urinary tract infection [Unknown]
  - Diplopia [Unknown]
  - Hepatomegaly [Unknown]
  - Pneumothorax [Unknown]
  - Weight increased [Unknown]
  - Myocarditis [Fatal]
  - Febrile bone marrow aplasia [Unknown]
  - Pyelonephritis [Unknown]
  - Mucosal inflammation [Unknown]
  - Pericardial effusion [Unknown]
  - Pneumonia staphylococcal [Unknown]
  - Candida infection [Unknown]
  - Nausea [Unknown]

NARRATIVE: CASE EVENT DATE: 201806
